FAERS Safety Report 8724166 (Version 3)
Quarter: 2012Q4

REPORT INFORMATION
  Report Type: 
  Country: US (occurrence: US)
  Receive Date: 20120815
  Receipt Date: 20120921
  Transmission Date: 20130627
  Serious: Yes (Other)
  Sender: FDA-Public Use
  Company Number: US-PFIZER INC-2012195080

PATIENT
  Age: 13 Year
  Sex: Male

DRUGS (3)
  1. SOMAVERT [Suspect]
     Indication: ACROMEGALY
     Dosage: UNK
     Route: 058
     Dates: start: 201205
  2. SOMAVERT [Suspect]
     Indication: GIGANTISM
     Dosage: 10 mg, 1x/day
     Route: 058
     Dates: start: 201205, end: 2012
  3. SOMAVERT [Suspect]
     Indication: HYPOTHALAMO-PITUITARY DISORDER

REACTIONS (2)
  - Surgery [Unknown]
  - Hepatic enzyme increased [Recovered/Resolved]
